FAERS Safety Report 16161628 (Version 10)
Quarter: 2020Q2

REPORT INFORMATION
  Report Type: Spontaneous
  Country: CA (occurrence: CA)
  Receive Date: 20190405
  Receipt Date: 20200524
  Transmission Date: 20200713
  Serious: Yes (Other)
  Sender: FDA-Public Use
  Company Number: CA-CELLTRION INC.-2018CA021079

PATIENT

DRUGS (20)
  1. INFLECTRA [Suspect]
     Active Substance: INFLIXIMAB-DYYB
     Dosage: 7.5 MG/KG, EVERY 7 WEEKS
     Route: 042
     Dates: start: 20190627
  2. INFLECTRA [Suspect]
     Active Substance: INFLIXIMAB-DYYB
     Dosage: 7.5 MG/KG, EVERY 4 WEEKS
     Route: 042
     Dates: start: 20200418
  3. INFLECTRA [Suspect]
     Active Substance: INFLIXIMAB-DYYB
     Indication: COLITIS ULCERATIVE
     Dosage: 5 MG/KG, 2, 6 WEEKS, THEN EVERY 8 WEEKS THEREAFTER
     Route: 042
     Dates: start: 20180614, end: 20190323
  4. INFLECTRA [Suspect]
     Active Substance: INFLIXIMAB-DYYB
     Dosage: 7.5 MG/KG, EVERY 7 WEEKS
     Route: 042
     Dates: start: 20191005, end: 20191005
  5. CORTENEMA [Concomitant]
     Active Substance: HYDROCORTISONE
     Dosage: UNK
     Dates: start: 202002, end: 202002
  6. INFLECTRA [Suspect]
     Active Substance: INFLIXIMAB-DYYB
     Dosage: 5 MG/KG, 2, 6 WEEKS, THEN EVERY 8 WEEKS THEREAFTER
     Route: 042
     Dates: start: 20180724
  7. INFLECTRA [Suspect]
     Active Substance: INFLIXIMAB-DYYB
     Dosage: 5 MG/KG, 2, 6 WEEKS, THEN EVERY 8 WEEKS THEREAFTER
     Route: 042
     Dates: start: 20181201
  8. INFLECTRA [Suspect]
     Active Substance: INFLIXIMAB-DYYB
     Dosage: 7.5 MG/KG, EVERY 4 WEEKS
     Route: 042
     Dates: start: 20191102
  9. INFLECTRA [Suspect]
     Active Substance: INFLIXIMAB-DYYB
     Dosage: 7.5 MG/KG, EVERY 4 WEEKS
     Route: 042
     Dates: start: 20200118
  10. INFLECTRA [Suspect]
     Active Substance: INFLIXIMAB-DYYB
     Dosage: 5 MG/KG, 2, 6 WEEKS, THEN EVERY 8 WEEKS THEREAFTER
     Route: 042
     Dates: start: 20180628
  11. INFLECTRA [Suspect]
     Active Substance: INFLIXIMAB-DYYB
     Dosage: 7.5 MG/KG, EVERY 4 WEEKS
     Route: 042
     Dates: start: 20191130
  12. PENTASA [Concomitant]
     Active Substance: MESALAMINE
     Dosage: UNK
  13. INFLECTRA [Suspect]
     Active Substance: INFLIXIMAB-DYYB
     Dosage: 5 MG/KG, 2, 6 WEEKS, THEN EVERY 8 WEEKS THEREAFTER
     Route: 042
     Dates: start: 20190119
  14. INFLECTRA [Suspect]
     Active Substance: INFLIXIMAB-DYYB
     Dosage: 5 MG/KG, 2, 6 WEEKS, THEN EVERY 8 WEEKS THEREAFTER
     Route: 042
     Dates: start: 20190323, end: 20190323
  15. INFLECTRA [Suspect]
     Active Substance: INFLIXIMAB-DYYB
     Dosage: 7.5 MG/KG, EVERY 7 WEEKS
     Route: 042
     Dates: start: 20190511, end: 20191005
  16. INFLECTRA [Suspect]
     Active Substance: INFLIXIMAB-DYYB
     Dosage: 5 MG/KG, 2, 6 WEEKS, THEN EVERY 8 WEEKS THEREAFTER
     Route: 042
     Dates: start: 20180915
  17. INFLECTRA [Suspect]
     Active Substance: INFLIXIMAB-DYYB
     Dosage: 7.5 MG/KG, EVERY 7 WEEKS
     Route: 042
     Dates: start: 20190817
  18. INFLECTRA [Suspect]
     Active Substance: INFLIXIMAB-DYYB
     Dosage: 7.5 MG/KG, EVERY 4 WEEKS
     Route: 042
     Dates: start: 20200321
  19. MEZAVANT [Concomitant]
     Active Substance: MESALAMINE
     Dosage: UNK
  20. INFLECTRA [Suspect]
     Active Substance: INFLIXIMAB-DYYB
     Dosage: 7.5 MG/KG, EVERY 4 WEEKS
     Route: 042
     Dates: start: 20200222

REACTIONS (16)
  - Blood pressure fluctuation [Unknown]
  - Malaise [Unknown]
  - Intentional product use issue [Unknown]
  - Acne [Not Recovered/Not Resolved]
  - Acne pustular [Not Recovered/Not Resolved]
  - Fatigue [Unknown]
  - Nasopharyngitis [Recovering/Resolving]
  - Heart rate irregular [Recovered/Resolved]
  - Off label use [Unknown]
  - Inappropriate schedule of product administration [Unknown]
  - Tachycardia [Recovered/Resolved]
  - Nausea [Recovered/Resolved]
  - Pneumonia [Unknown]
  - Condition aggravated [Not Recovered/Not Resolved]
  - Off label use [Not Recovered/Not Resolved]
  - Feeling cold [Recovered/Resolved]

NARRATIVE: CASE EVENT DATE: 20180724
